FAERS Safety Report 7700761-X (Version None)
Quarter: 2011Q3

REPORT INFORMATION
  Report Type: 
  Country: None (occurrence: None)
  Receive Date: 20110822
  Receipt Date: 20110809
  Transmission Date: 20111222
  Serious: Yes (Hospitalization)
  Sender: FDA-Public Use
  Company Number: US-CELGENEUS-163-21880-11051448

PATIENT
  Sex: Female
  Weight: 68.9 kg

DRUGS (16)
  1. HYZAAR [Concomitant]
     Dosage: 25MG-100MG
     Route: 048
  2. LORAZEPAM [Concomitant]
     Dosage: .5 MILLIEQUIVALENTS
     Route: 048
  3. STOOL SOFTENER [Concomitant]
     Route: 065
  4. AMBIEN [Concomitant]
     Dosage: 5 MILLIGRAM
     Route: 048
     Dates: start: 20110228
  5. AZITHROMYCIN [Concomitant]
     Dosage: 250 MILLIGRAM
     Route: 048
  6. DULCOLAX [Concomitant]
     Dosage: 1 DOSAGE FORMS
     Route: 048
  7. MEGESTROL ACETATE [Concomitant]
     Route: 065
  8. PERCOCET [Concomitant]
     Dosage: 1-2
     Route: 048
  9. PROVENTIL-HFA [Concomitant]
     Dosage: 0.09MG , 2 PUFFS
     Route: 055
  10. FENTANYL [Concomitant]
     Dosage: 12.5 MCG/HR
     Route: 062
  11. ATENOLOL [Concomitant]
     Dosage: 25 MILLIGRAM
     Route: 048
  12. DECADRON [Concomitant]
     Dosage: 40 MILLIGRAM
     Route: 048
     Dates: start: 20110128
  13. MIRALAX [Concomitant]
     Dosage: 17 GRAM
     Route: 065
  14. REVLIMID [Suspect]
     Indication: MULTIPLE MYELOMA
     Dosage: 25 MILLIGRAM
     Route: 048
     Dates: start: 20110221, end: 20110629
  15. REVLIMID [Suspect]
     Dosage: 25 MILLIGRAM
     Route: 048
     Dates: start: 20110708
  16. KLOR-CON [Concomitant]
     Dosage: 10 MILLIEQUIVALENTS
     Route: 048

REACTIONS (4)
  - NAUSEA [None]
  - PAIN [None]
  - GALLBLADDER DISORDER [None]
  - FEELING JITTERY [None]
